FAERS Safety Report 5217961-3 (Version None)
Quarter: 2007Q1

REPORT INFORMATION
  Report Type: 
  Country: None (occurrence: None)
  Receive Date: 20070124
  Receipt Date: 20070115
  Transmission Date: 20070707
  Serious: Yes (Other)
  Sender: FDA-Public Use
  Company Number: PHFR2007MT00573

PATIENT
  Age: 85 Year
  Sex: Male

DRUGS (3)
  1. LESCOL XL [Suspect]
     Indication: HYPERLIPIDAEMIA
     Dosage: 80 MG/DAY
     Route: 048
     Dates: start: 20010101, end: 20061201
  2. DIURETICS [Concomitant]
  3. ACE INHIBITOR NOS [Concomitant]

REACTIONS (3)
  - BLOOD CREATINE PHOSPHOKINASE INCREASED [None]
  - CHEST PAIN [None]
  - MUSCLE ATROPHY [None]
